FAERS Safety Report 4315615-9 (Version None)
Quarter: 2004Q1

REPORT INFORMATION
  Report Type: 
  Country: None (occurrence: None)
  Receive Date: 20040311
  Receipt Date: 20030912
  Transmission Date: 20041129
  Serious: Yes (Death, Hospitalization)
  Sender: FDA-Public Use
  Company Number: US-GLAXOSMITHKLINE-A0426773A

PATIENT
  Age: 38 Year
  Sex: Male
  Weight: 90.9 kg

DRUGS (6)
  1. PAXIL [Suspect]
     Indication: ANXIETY
     Dosage: 20MG PER DAY
     Route: 048
     Dates: start: 20010601, end: 20010701
  2. XANAX [Concomitant]
     Route: 048
  3. SKELAXIN [Concomitant]
     Route: 048
  4. CLONAZEPAM [Concomitant]
     Route: 048
  5. CYCLOBENZAPRINE [Concomitant]
     Route: 048
  6. FLEXERIL [Concomitant]
     Indication: MUSCLE SPASMS
     Dosage: 10MG AT NIGHT
     Route: 048

REACTIONS (60)
  - ABSCESS [None]
  - ADRENAL HAEMORRHAGE [None]
  - ASTHENIA [None]
  - BACTERIAL INFECTION [None]
  - BALANCE DISORDER [None]
  - BLINDNESS [None]
  - BRONCHOPNEUMONIA [None]
  - CEREBRAL HAEMATOMA [None]
  - CEREBRAL HAEMORRHAGE [None]
  - CEREBROVASCULAR DISORDER [None]
  - CONFUSIONAL STATE [None]
  - CONVULSION [None]
  - CYSTITIS [None]
  - DEEP VEIN THROMBOSIS [None]
  - DEPRESSED LEVEL OF CONSCIOUSNESS [None]
  - DEPRESSION [None]
  - DIZZINESS [None]
  - DYSPHAGIA [None]
  - DYSPNOEA [None]
  - EPISTAXIS [None]
  - EYE EXCISION [None]
  - FUNGAL INFECTION [None]
  - GASTROINTESTINAL NECROSIS [None]
  - HAEMATOCRIT DECREASED [None]
  - HAEMOGLOBIN DECREASED [None]
  - HALLUCINATION [None]
  - HEADACHE [None]
  - HEPATIC CONGESTION [None]
  - HYDROCEPHALUS [None]
  - HYPERAEMIA [None]
  - INCONTINENCE [None]
  - INCREASED BRONCHIAL SECRETION [None]
  - JAW FRACTURE [None]
  - LETHARGY [None]
  - LOSS OF CONSCIOUSNESS [None]
  - MEMORY IMPAIRMENT [None]
  - MENINGITIS [None]
  - OPTIC NERVE INJURY [None]
  - OXYGEN SATURATION DECREASED [None]
  - PLATELET COUNT ABNORMAL [None]
  - PLATELET DISORDER [None]
  - PLEURAL EFFUSION [None]
  - PNEUMOCEPHALUS [None]
  - PNEUMONIA [None]
  - PROTEIN TOTAL ABNORMAL [None]
  - PSEUDOMONAS INFECTION [None]
  - PULMONARY CONGESTION [None]
  - PYREXIA [None]
  - RED BLOOD CELL COUNT DECREASED [None]
  - RESPIRATORY FAILURE [None]
  - SKIN INFECTION [None]
  - SKIN LACERATION [None]
  - SKULL FRACTURE [None]
  - STAPHYLOCOCCAL INFECTION [None]
  - SUICIDE ATTEMPT [None]
  - TRACHEITIS [None]
  - TRACHEOSTOMY [None]
  - TREMOR [None]
  - VOMITING [None]
  - WHITE BLOOD CELL COUNT INCREASED [None]
